FAERS Safety Report 6288806-8 (Version None)
Quarter: 2009Q3

REPORT INFORMATION
  Report Type: 
  Country: None (occurrence: None)
  Receive Date: 20090729
  Receipt Date: 20090717
  Transmission Date: 20100115
  Serious: Yes (Life-Threatening, Hospitalization)
  Sender: FDA-Public Use
  Company Number: JP-PFIZER INC-2009233606

PATIENT
  Age: 69 Year

DRUGS (4)
  1. ZOLOFT [Suspect]
     Indication: DEPRESSION
     Dosage: 25 MG, 1X/DAY
     Route: 048
     Dates: start: 20090611, end: 20090615
  2. MECOBALAMIN [Concomitant]
     Route: 048
     Dates: start: 20090507, end: 20090603
  3. ZEPOLAS [Concomitant]
     Route: 062
     Dates: start: 20090521
  4. VOLTAREN [Concomitant]
     Dosage: UNK
     Dates: start: 20090613, end: 20090618

REACTIONS (9)
  - ARTHRALGIA [None]
  - DECREASED APPETITE [None]
  - HYPOKALAEMIA [None]
  - HYPONATRAEMIA [None]
  - HYPOURICAEMIA [None]
  - NAUSEA [None]
  - SOMNOLENCE [None]
  - URINE OUTPUT DECREASED [None]
  - VISION BLURRED [None]
